FAERS Safety Report 14380644 (Version 2)
Quarter: 2018Q1

REPORT INFORMATION
  Report Type: Spontaneous
  Country: BR (occurrence: BR)
  Receive Date: 20180112
  Receipt Date: 20180124
  Transmission Date: 20180509
  Serious: Yes (Other)
  Sender: FDA-Public Use
  Company Number: BR-009507513-1801BRA004144

PATIENT
  Age: 33 Year
  Sex: Female

DRUGS (1)
  1. MAXALT [Suspect]
     Active Substance: RIZATRIPTAN BENZOATE
     Indication: MIGRAINE PROPHYLAXIS
     Dosage: EVERY 15 DAYS WHEN PATIENT WAS ON CRISIS
     Route: 048
     Dates: start: 20171010

REACTIONS (2)
  - Thunderclap headache [Recovered/Resolved]
  - Maternal exposure during pregnancy [Unknown]

NARRATIVE: CASE EVENT DATE: 20180108
